FAERS Safety Report 5159308-7 (Version None)
Quarter: 2006Q4

REPORT INFORMATION
  Report Type: 
  Country: None (occurrence: None)
  Receive Date: 20061120
  Receipt Date: 20061103
  Transmission Date: 20070319
  Serious: Yes (Hospitalization)
  Sender: FDA-Public Use
  Company Number: 8019979

PATIENT
  Age: 85 Year
  Sex: Male
  Weight: 84 kg

DRUGS (1)
  1. KEPPRA [Suspect]
     Indication: CONVULSION
     Dosage: 2500 MG/D PO
     Route: 048
     Dates: start: 20030101, end: 20060101

REACTIONS (1)
  - HYPONATRAEMIA [None]
